FAERS Safety Report 6478455-0 (Version None)
Quarter: 2009Q4

REPORT INFORMATION
  Report Type: 
  Country: None (occurrence: None)
  Receive Date: 20091207
  Receipt Date: 20091124
  Transmission Date: 20100525
  Serious: Yes (Hospitalization)
  Sender: FDA-Public Use
  Company Number: BR-ELI_LILLY_AND_COMPANY-BR200911006458

PATIENT
  Sex: Female
  Weight: 38 kg

DRUGS (6)
  1. FORTEO [Suspect]
     Indication: OSTEOPOROSIS
     Dosage: UNK, UNKNOWN
     Route: 065
     Dates: start: 20070601
  2. FORASEQ [Concomitant]
     Indication: EMPHYSEMA
     Dosage: 400 MG, 2/D
     Route: 065
  3. SPIRIVA [Concomitant]
     Indication: EMPHYSEMA
     Dosage: UNK, DAILY (1/D)
     Route: 065
  4. BEROTEC [Concomitant]
     Indication: EMPHYSEMA
     Dosage: UNK, 2/D
     Route: 065
  5. ATROVENT [Concomitant]
     Dosage: UNK, 2/D
     Route: 065
  6. CAPTOPRIL [Concomitant]
     Indication: HYPERTENSION
     Dosage: 25 MG, DAILY (1/D)
     Route: 065

REACTIONS (3)
  - BONE PAIN [None]
  - CARDIOVASCULAR DISORDER [None]
  - HYPERTENSION [None]
